FAERS Safety Report 9352838 (Version 1)
Quarter: 2013Q2

REPORT INFORMATION
  Report Type: Spontaneous
  Country: US (occurrence: None)
  Receive Date: 20130614
  Receipt Date: 20130614
  Transmission Date: 20140414
  Serious: Yes (Disabling, Other)
  Sender: FDA-Public Use
  Company Number: None

PATIENT
  Age: 45 Year
  Sex: Female
  Weight: 61.24 kg

DRUGS (1)
  1. SERTRALINE [Suspect]
     Indication: ANXIETY
     Dosage: 1TABLET DAILY
     Dates: start: 20130517, end: 20130520

REACTIONS (3)
  - Panic attack [None]
  - Palpitations [None]
  - Insomnia [None]
